FAERS Safety Report 12353252 (Version 3)
Quarter: 2016Q3

REPORT INFORMATION
  Report Type: Report from Study
  Country: US (occurrence: US)
  Receive Date: 20160510
  Receipt Date: 20160815
  Transmission Date: 20161109
  Serious: Yes (Other)
  Sender: FDA-Public Use
  Company Number: PHEH2016US011023

PATIENT
  Sex: Male

DRUGS (1)
  1. EXTAVIA [Suspect]
     Active Substance: INTERFERON BETA-1B
     Indication: MULTIPLE SCLEROSIS
     Dosage: 0.25 MG (1 ML), QOD
     Route: 058

REACTIONS (7)
  - Injection site bruising [Unknown]
  - Multiple sclerosis relapse [Unknown]
  - Malaise [Unknown]
  - Hypoaesthesia [Unknown]
  - Injection site pain [Unknown]
  - Needle issue [Unknown]
  - Muscular weakness [Unknown]
